FAERS Safety Report 25565114 (Version 1)
Quarter: 2025Q3

REPORT INFORMATION
  Report Type: Spontaneous
  Country: CN (occurrence: CN)
  Receive Date: 20250716
  Receipt Date: 20250716
  Transmission Date: 20251021
  Serious: Yes (Death, Life-Threatening, Hospitalization, Other)
  Sender: RANBAXY
  Company Number: CN-SUN PHARMACEUTICAL INDUSTRIES INC-2025R1-516999

PATIENT
  Age: 76 Year
  Sex: Female

DRUGS (1)
  1. RIVAROXABAN [Suspect]
     Active Substance: RIVAROXABAN
     Indication: Anticoagulant therapy
     Dosage: 20 MILLIGRAM, DAILY
     Route: 048

REACTIONS (8)
  - Therapy non-responder [Fatal]
  - Embolism [Fatal]
  - Anal incontinence [Fatal]
  - Urinary incontinence [Fatal]
  - Paralysis [Fatal]
  - Paraplegia [Fatal]
  - Condition aggravated [Fatal]
  - Spinal cord injury [Fatal]

NARRATIVE: CASE EVENT DATE: 20240706
